FAERS Safety Report 18986889 (Version 1)
Quarter: 2021Q1

REPORT INFORMATION
  Report Type: Spontaneous
  Country: IT (occurrence: IT)
  Receive Date: 20210309
  Receipt Date: 20210309
  Transmission Date: 20210420
  Serious: Yes (Other)
  Sender: FDA-Public Use
  Company Number: IT-ROCHE-2778250

PATIENT
  Sex: Male
  Weight: 150 kg

DRUGS (1)
  1. OCREVUS [Suspect]
     Active Substance: OCRELIZUMAB
     Indication: PRIMARY PROGRESSIVE MULTIPLE SCLEROSIS
     Dosage: 5 CYCLE, STOPPED
     Route: 065

REACTIONS (3)
  - Drug ineffective [Unknown]
  - Overweight [Unknown]
  - Disease progression [Unknown]
